FAERS Safety Report 23753971 (Version 1)
Quarter: 2024Q2

REPORT INFORMATION
  Report Type: Spontaneous
  Country: US (occurrence: US)
  Receive Date: 20240417
  Receipt Date: 20240417
  Transmission Date: 20240715
  Serious: No
  Sender: FDA-Public Use
  Company Number: US-ELI_LILLY_AND_COMPANY-US202404011597

PATIENT
  Sex: Female

DRUGS (2)
  1. TERIPARATIDE [Suspect]
     Active Substance: TERIPARATIDE
     Indication: Product used for unknown indication
     Dosage: 20 U, UNKNOWN
     Route: 058
  2. TERIPARATIDE [Suspect]
     Active Substance: TERIPARATIDE
     Dosage: 20 U, UNKNOWN
     Route: 058

REACTIONS (7)
  - Pain in jaw [Unknown]
  - Abdominal distension [Unknown]
  - Dyspepsia [Unknown]
  - Mouth swelling [Unknown]
  - Gingival disorder [Unknown]
  - Chest discomfort [Unknown]
  - Swollen tongue [Unknown]
